FAERS Safety Report 26170475 (Version 1)
Quarter: 2025Q4

REPORT INFORMATION
  Report Type: Report from Study
  Country: US (occurrence: US)
  Receive Date: 20251217
  Receipt Date: 20251217
  Transmission Date: 20260118
  Serious: Yes (Hospitalization)
  Sender: EISAI
  Company Number: US-Eisai-EC-2025-201924

PATIENT
  Age: 18 Year
  Sex: Male

DRUGS (2)
  1. LENVIMA [Suspect]
     Active Substance: LENVATINIB
     Indication: Hepatocellular carcinoma
     Route: 048
     Dates: start: 202510
  2. FULPHILA [Concomitant]
     Active Substance: PEGFILGRASTIM-JMDB
     Indication: Agranulocytosis
     Dosage: DOSE AND FREQUENCY UNKNOWN

REACTIONS (3)
  - Dehydration [Unknown]
  - Abdominal pain upper [Unknown]
  - Vomiting [Unknown]

NARRATIVE: CASE EVENT DATE: 20251204
